FAERS Safety Report 9274591 (Version 3)
Quarter: 2016Q2

REPORT INFORMATION
  Report Type: Spontaneous
  Country: HU (occurrence: HU)
  Receive Date: 20130507
  Receipt Date: 20160401
  Transmission Date: 20160815
  Serious: Yes (Other)
  Sender: FDA-Public Use
  Company Number: HU-ROCHE-1219615

PATIENT
  Age: 51 Year
  Sex: Female

DRUGS (3)
  1. CISPLATIN. [Suspect]
     Active Substance: CISPLATIN
     Indication: ADRENAL GLAND CANCER
     Route: 065
     Dates: start: 20081120, end: 20090326
  2. GEMZAR [Suspect]
     Active Substance: GEMCITABINE HYDROCHLORIDE
     Indication: ADRENAL GLAND CANCER
     Route: 065
     Dates: start: 20081120, end: 20090326
  3. AVASTIN [Suspect]
     Active Substance: BEVACIZUMAB
     Indication: ADRENAL GLAND CANCER
     Route: 065
     Dates: start: 20090129

REACTIONS (20)
  - Perineal pain [Unknown]
  - Hypercholesterolaemia [Unknown]
  - Nephrolithiasis [Unknown]
  - Lower respiratory tract infection [Recovered/Resolved]
  - Neutropenia [Unknown]
  - Pyrexia [Unknown]
  - Rectal ulcer [Unknown]
  - Blood glucose increased [Unknown]
  - Anxiety [Unknown]
  - Renal failure [Unknown]
  - Cholelithiasis [Unknown]
  - Renal cyst [Unknown]
  - Anaemia [Unknown]
  - Bone pain [Unknown]
  - Hypertension [Unknown]
  - Hyperkalaemia [Unknown]
  - Haematochezia [Unknown]
  - Spinal pain [Unknown]
  - Hypertriglyceridaemia [Unknown]
  - Hyperuricaemia [Unknown]

NARRATIVE: CASE EVENT DATE: 20090127
